FAERS Safety Report 9274504 (Version 3)
Quarter: 2013Q3

REPORT INFORMATION
  Report Type: Spontaneous
  Country: GB (occurrence: GB)
  Receive Date: 20130507
  Receipt Date: 20130806
  Transmission Date: 20140515
  Serious: Yes (Hospitalization)
  Sender: FDA-Public Use
  Company Number: GB-ABBOTT-13X-167-1084759-00

PATIENT
  Age: 24 Year
  Sex: Female

DRUGS (4)
  1. SODIUM VALPROATE [Suspect]
     Indication: BIPOLAR I DISORDER
  2. OLANZAPINE [Suspect]
     Indication: BIPOLAR I DISORDER
  3. OLANZAPINE [Suspect]
  4. OLANZAPINE [Suspect]

REACTIONS (2)
  - Treatment noncompliance [Unknown]
  - Mania [Unknown]
